FAERS Safety Report 17225161 (Version 1)
Quarter: 2020Q1

REPORT INFORMATION
  Report Type: Spontaneous
  Country: US (occurrence: US)
  Receive Date: 20200101
  Receipt Date: 20200101
  Transmission Date: 20200409
  Serious: Yes (Life-Threatening, Hospitalization)
  Sender: FDA-Public Use
  Company Number: None

PATIENT
  Age: 44 Year
  Sex: Male
  Weight: 84.5 kg

DRUGS (7)
  1. RESTASIS [Concomitant]
     Active Substance: CYCLOSPORINE
     Dates: start: 20190806
  2. DEXASOL [Concomitant]
     Dates: start: 20190806, end: 20190820
  3. FLUOROMETHOLONE. [Concomitant]
     Active Substance: FLUOROMETHOLONE
     Dates: start: 20190820, end: 20190831
  4. ALLOPURINOL. [Suspect]
     Active Substance: ALLOPURINOL
     Indication: GOUT
     Route: 048
     Dates: start: 20190712, end: 20190801
  5. TOBRADEX [Concomitant]
     Active Substance: DEXAMETHASONE\TOBRAMYCIN
     Dates: start: 20190806, end: 20190831
  6. VIGAMOX [Concomitant]
     Active Substance: MOXIFLOXACIN HYDROCHLORIDE
     Dates: start: 20190806, end: 20190820
  7. ARTIFICIAL TEARS [Concomitant]
     Active Substance: GLYCERIN\HYPROMELLOSES\POLYETHYLENE GLYCOL 400
     Dates: start: 20190806

REACTIONS (11)
  - Ocular hyperaemia [None]
  - Periorbital oedema [None]
  - Blister [None]
  - Eyelid disorder [None]
  - Pharyngitis [None]
  - Pyrexia [None]
  - Rash maculo-papular [None]
  - Arthralgia [None]
  - Malaise [None]
  - Purulent discharge [None]
  - Fatigue [None]

NARRATIVE: CASE EVENT DATE: 20190806
